FAERS Safety Report 24275318 (Version 1)
Quarter: 2024Q3

REPORT INFORMATION
  Report Type: Spontaneous
  Country: CN (occurrence: CN)
  Receive Date: 20240903
  Receipt Date: 20240903
  Transmission Date: 20241017
  Serious: Yes (Disabling)
  Sender: ACCORD
  Company Number: None

PATIENT
  Age: 53 Year
  Sex: Female
  Weight: 64.3 kg

DRUGS (2)
  1. TRASTUZUMAB [Suspect]
     Active Substance: TRASTUZUMAB
     Indication: Neoplasm malignant
     Dosage: 514.4 MILLIGRAM, QD
     Route: 042
     Dates: start: 20240524, end: 20240524
  2. DOCETAXEL [Suspect]
     Active Substance: DOCETAXEL\DOCETAXEL ANHYDROUS
     Indication: Product used for unknown indication
     Dosage: 160 MILLIGRAM, QD
     Route: 042
     Dates: start: 20240524, end: 20240524

REACTIONS (1)
  - Myelosuppression [Recovering/Resolving]

NARRATIVE: CASE EVENT DATE: 20240531
